FAERS Safety Report 12728174 (Version 4)
Quarter: 2017Q1

REPORT INFORMATION
  Report Type: Spontaneous
  Country: GB (occurrence: GB)
  Receive Date: 20160909
  Receipt Date: 20170317
  Transmission Date: 20170428
  Serious: Yes (Hospitalization)
  Sender: FDA-Public Use
  Company Number: GB-OTSUKA-2016_021577

PATIENT
  Sex: Female

DRUGS (2)
  1. ABILIFY MAINTENA [Suspect]
     Active Substance: ARIPIPRAZOLE
     Indication: SCHIZOPHRENIA
     Dosage: 400 MG, EVERY 26 DAYS
     Route: 030
     Dates: start: 201405
  2. ABILIFY MAINTENA [Suspect]
     Active Substance: ARIPIPRAZOLE
     Indication: MANIA

REACTIONS (14)
  - Mania [Unknown]
  - Musculoskeletal stiffness [Unknown]
  - Nervousness [Unknown]
  - Chest discomfort [Unknown]
  - Heart rate abnormal [Unknown]
  - Frequent bowel movements [Unknown]
  - Aggression [Unknown]
  - Agitation [Unknown]
  - Muscle rigidity [Unknown]
  - Diarrhoea [Unknown]
  - Product use issue [Unknown]
  - Oropharyngeal pain [Unknown]
  - Back pain [Unknown]
  - Hypertension [Unknown]
